FAERS Safety Report 6649209-7 (Version None)
Quarter: 2010Q1

REPORT INFORMATION
  Report Type: 
  Country: None (occurrence: None)
  Receive Date: 20100324
  Receipt Date: 20100323
  Transmission Date: 20100710
  Serious: Yes (Hospitalization)
  Sender: FDA-Public Use
  Company Number: D0066909A

PATIENT

DRUGS (2)
  1. LAMICTAL CD [Suspect]
     Route: 048
  2. VALPROATE SODIUM [Suspect]
     Route: 065

REACTIONS (2)
  - INTENTIONAL OVERDOSE [None]
  - SUICIDE ATTEMPT [None]
